FAERS Safety Report 6611491-X (Version None)
Quarter: 2010Q1

REPORT INFORMATION
  Report Type: 
  Country: None (occurrence: None)
  Receive Date: 20100303
  Receipt Date: 20100218
  Transmission Date: 20100710
  Serious: Yes (Hospitalization, Other)
  Sender: FDA-Public Use
  Company Number: PHHY2010DE09763

PATIENT
  Sex: Female

DRUGS (10)
  1. CO-DIOVAN [Suspect]
     Dosage: 80/ 6.25 MG DAILY
     Route: 048
     Dates: end: 20090910
  2. BISOHEXAL [Suspect]
     Dosage: 10 MG/DAY
     Route: 048
     Dates: end: 20090910
  3. TORASEMIDE [Suspect]
     Dosage: 5 MG/DAY
     Route: 048
     Dates: end: 20090910
  4. LORAZEPAM [Suspect]
     Dosage: 2 MG/DAY
     Route: 048
  5. LORAZEPAM [Suspect]
     Dosage: 0.25 MG/DAY
     Route: 048
  6. REMERGIL [Suspect]
     Dosage: 15 MG/DAY
     Route: 048
     Dates: start: 20090909, end: 20090910
  7. REMERGIL [Suspect]
     Dosage: 15 MG/ DAY
     Route: 048
     Dates: start: 20090911, end: 20090916
  8. METHIZOL [Concomitant]
     Dosage: 5 MG/DAY
     Route: 048
  9. PLAVIX [Concomitant]
     Dosage: 75 MG/DAY
     Route: 048
  10. SIMVADURA [Concomitant]
     Dosage: 20 MG/ DAY
     Route: 048
     Dates: end: 20090910

REACTIONS (9)
  - ANXIETY [None]
  - CIRCULATORY COLLAPSE [None]
  - CONSTIPATION [None]
  - DECREASED APPETITE [None]
  - FEELING ABNORMAL [None]
  - HYPOTENSION [None]
  - LOSS OF CONSCIOUSNESS [None]
  - RESTLESSNESS [None]
  - WEIGHT DECREASED [None]
